FAERS Safety Report 9241135 (Version 2)
Quarter: 2013Q2

REPORT INFORMATION
  Report Type: Spontaneous
  Country: BR (occurrence: BR)
  Receive Date: 20130419
  Receipt Date: 20130627
  Transmission Date: 20140414
  Serious: Yes (Death)
  Sender: FDA-Public Use
  Company Number: BR-BAYER-2013-046663

PATIENT
  Sex: Male

DRUGS (1)
  1. NEXAVAR [Suspect]
     Route: 048

REACTIONS (1)
  - Death [Fatal]
